FAERS Safety Report 4915974-X (Version None)
Quarter: 2006Q1

REPORT INFORMATION
  Report Type: 
  Country: None (occurrence: None)
  Receive Date: 20060214
  Receipt Date: 20060126
  Transmission Date: 20060701
  Serious: Yes (Hospitalization, Other)
  Sender: FDA-Public Use
  Company Number: US200601001622

PATIENT
  Age: 69 Year
  Sex: Female
  Weight: 69.4 kg

DRUGS (13)
  1. FORTEO [Suspect]
     Indication: OSTEOPOROSIS
     Dosage: 20 UG, DAILY (1/D), UNK
     Route: 065
     Dates: start: 20040401, end: 20050401
  2. FORTEO PEN (FORTEO PEN) [Concomitant]
  3. FLONASE [Concomitant]
  4. EFFEXOR XR [Concomitant]
  5. TAMOXIFEN CITRATE [Concomitant]
  6. SKELAXIN [Concomitant]
  7. STARLIX [Concomitant]
  8. ULTRAM [Concomitant]
  9. TOPIRAMATE [Concomitant]
  10. MULTIPLE VITAMINS (ASCORBIC ACID, ERGOCALCIFEROL, FOLIC ACID, RETINOL, [Concomitant]
  11. PREVACID [Concomitant]
  12. LIPITOR [Concomitant]
  13. CLARINEX [Concomitant]

REACTIONS (16)
  - ABASIA [None]
  - ADENOMYOSIS [None]
  - ADRENAL MASS [None]
  - ADRENAL NEOPLASM [None]
  - ARTHRALGIA [None]
  - ASTHENIA [None]
  - BREAST CANCER METASTATIC [None]
  - BREAST CANCER RECURRENT [None]
  - FATIGUE [None]
  - HEPATIC MASS [None]
  - LYMPHOCELE [None]
  - METASTASES TO BONE [None]
  - METASTASES TO LIVER [None]
  - METASTASES TO LYMPH NODES [None]
  - MYALGIA [None]
  - UTERINE LEIOMYOMA [None]
